FAERS Safety Report 18841682 (Version 3)
Quarter: 2024Q4

REPORT INFORMATION
  Report Type: Spontaneous
  Country: US (occurrence: US)
  Receive Date: 20210203
  Receipt Date: 20241030
  Transmission Date: 20250115
  Serious: Yes (Other)
  Sender: PFIZER
  Company Number: US-PFIZER INC-2021098793

PATIENT
  Age: 65 Year
  Sex: Male
  Weight: 99.79 kg

DRUGS (2)
  1. INLYTA [Suspect]
     Active Substance: AXITINIB
     Indication: Renal cell carcinoma
     Dosage: 5 MG, 2X/DAY(EVERY 12 HOURS)
     Route: 048
     Dates: start: 202005
  2. INLYTA [Suspect]
     Active Substance: AXITINIB
     Dosage: 5 MG, TAKE 1 TABLET DAILY
     Route: 048
     Dates: end: 202410

REACTIONS (8)
  - Prostatectomy [Not Recovered/Not Resolved]
  - Neoplasm progression [Unknown]
  - Constipation [Unknown]
  - Diarrhoea [Not Recovered/Not Resolved]
  - Bowel movement irregularity [Not Recovered/Not Resolved]
  - Vomiting [Recovered/Resolved]
  - Nausea [Recovered/Resolved]
  - Off label use [Unknown]

NARRATIVE: CASE EVENT DATE: 20230101
